FAERS Safety Report 8339281-0 (Version None)
Quarter: 2012Q2

REPORT INFORMATION
  Report Type: 
  Country: None (occurrence: None)
  Receive Date: 20120502
  Receipt Date: 20120419
  Transmission Date: 20120825
  Serious: Yes (Hospitalization)
  Sender: FDA-Public Use
  Company Number: 2012-001430

PATIENT
  Age: 58 Year
  Sex: Female

DRUGS (3)
  1. ACTONEL [Suspect]
     Indication: OSTEOPOROSIS
     Dosage: 17.5 MG ONE WEEKLY, ORAL
     Route: 048
     Dates: start: 20090514, end: 20120309
  2. RHEUMATREX [Concomitant]
  3. VOLTAREN [Concomitant]

REACTIONS (2)
  - ATYPICAL FEMUR FRACTURE [None]
  - ARTHRALGIA [None]
